FAERS Safety Report 21113317 (Version 3)
Quarter: 2022Q3

REPORT INFORMATION
  Report Type: Spontaneous
  Country: DE (occurrence: DE)
  Receive Date: 20220721
  Receipt Date: 20220830
  Transmission Date: 20221027
  Serious: Yes (Death, Hospitalization)
  Sender: FDA-Public Use
  Company Number: DE-Merck Healthcare KGaA-9338098

PATIENT
  Age: 61 Year

DRUGS (1)
  1. AVELUMAB [Suspect]
     Active Substance: AVELUMAB
     Indication: Bladder cancer
     Route: 042
     Dates: start: 20220506, end: 20220506

REACTIONS (3)
  - Disease progression [Fatal]
  - Ascites [Unknown]
  - Hepatic failure [Unknown]
